FAERS Safety Report 8978954 (Version 2)
Quarter: 2012Q4

REPORT INFORMATION
  Report Type: Report from Study
  Country: IT (occurrence: IT)
  Receive Date: 20121221
  Receipt Date: 20121226
  Transmission Date: 20130627
  Serious: No
  Sender: FDA-Public Use
  Company Number: IT-009507513-1212ITA000821

PATIENT
  Age: 38 Year
  Sex: Female
  Weight: 52 kg

DRUGS (4)
  1. SYCREST [Suspect]
     Indication: AGITATION
     Dosage: 10 mg, qd
     Dates: start: 20120707, end: 20121023
  2. DEPAKIN [Concomitant]
     Indication: BIPOLAR DISORDER
     Dosage: 300 mg, qd
     Route: 048
     Dates: start: 2012, end: 20120707
  3. DEPAKIN [Concomitant]
     Dosage: 300 mg, qd
     Dates: start: 20120919
  4. RISPERDAL [Concomitant]
     Indication: BIPOLAR DISORDER
     Dosage: 2 mg, bid
     Route: 048
     Dates: start: 2012, end: 2012

REACTIONS (1)
  - Amenorrhoea [Recovered/Resolved]
